FAERS Safety Report 9844343 (Version 1)
Quarter: 2014Q1

REPORT INFORMATION
  Report Type: Spontaneous
  Country: CN (occurrence: CN)
  Receive Date: 20140127
  Receipt Date: 20140127
  Transmission Date: 20141002
  Serious: Yes (Hospitalization)
  Sender: FDA-Public Use
  Company Number: CN-ROCHE-1335973

PATIENT
  Age: 62 Year
  Sex: Male

DRUGS (1)
  1. TAMIFLU [Suspect]
     Indication: AVIAN INFLUENZA
     Route: 065

REACTIONS (2)
  - Disease progression [Not Recovered/Not Resolved]
  - Lung disorder [Recovered/Resolved]
